FAERS Safety Report 11776186 (Version 2)
Quarter: 2016Q1

REPORT INFORMATION
  Report Type: Spontaneous
  Country: US (occurrence: US)
  Receive Date: 20151125
  Receipt Date: 20160208
  Transmission Date: 20160525
  Serious: No
  Sender: FDA-Public Use
  Company Number: US-LEO PHARMA-238518

PATIENT
  Age: 58 Year
  Sex: Female

DRUGS (1)
  1. PICATO [Suspect]
     Active Substance: INGENOL MEBUTATE
     Indication: ACTINIC KERATOSIS
     Route: 061
     Dates: start: 20151106, end: 20151107

REACTIONS (3)
  - Application site exfoliation [Recovered/Resolved]
  - Application site burn [Recovered/Resolved]
  - Application site pain [Recovered/Resolved]
